FAERS Safety Report 18642114 (Version 1)
Quarter: 2020Q4

REPORT INFORMATION
  Report Type: Spontaneous
  Country: GB (occurrence: GB)
  Receive Date: 20201221
  Receipt Date: 20201221
  Transmission Date: 20210114
  Serious: Yes (Life-Threatening, Hospitalization)
  Sender: FDA-Public Use
  Company Number: GB-ACCORD-211649

PATIENT
  Age: 73 Year
  Sex: Male
  Weight: 88.9 kg

DRUGS (5)
  1. CLOZAPINE. [Suspect]
     Active Substance: CLOZAPINE
     Indication: SCHIZOPHRENIA
     Route: 048
  2. LORAZEPAM. [Concomitant]
     Active Substance: LORAZEPAM
  3. CYCLIZINE [Concomitant]
     Active Substance: CYCLIZINE
  4. OMEPRAZOLE. [Concomitant]
     Active Substance: OMEPRAZOLE
  5. GLICLAZIDE [Concomitant]
     Active Substance: GLICLAZIDE

REACTIONS (4)
  - Ileus paralytic [Unknown]
  - Vomiting [Unknown]
  - Pneumonia aspiration [Unknown]
  - Intestinal pseudo-obstruction [Not Recovered/Not Resolved]
